FAERS Safety Report 7527333-4 (Version None)
Quarter: 2011Q2

REPORT INFORMATION
  Report Type: 
  Country: None (occurrence: None)
  Receive Date: 20110607
  Receipt Date: 20090112
  Transmission Date: 20111010
  Serious: Yes (Hospitalization, Other)
  Sender: FDA-Public Use
  Company Number: US-BAYER-200910318NA

PATIENT
  Age: 44 Year
  Sex: Female
  Weight: 57 kg

DRUGS (16)
  1. PROTAMINE SULFATE [Concomitant]
     Dosage: 200 MG
     Route: 042
     Dates: start: 20060112
  2. MILRINONE [Concomitant]
     Dosage: 1 MG
     Route: 042
     Dates: start: 20060112
  3. TRASYLOL [Suspect]
     Indication: AORTIC VALVE REPLACEMENT
     Dosage: 200 ML PRIME, 200 ML LOADING DOSE, 50 ML/HOUR INFUSION
     Route: 042
     Dates: start: 20060112
  4. ALDACTONE [Concomitant]
     Dosage: 25 MG, BID
     Route: 048
  5. PLASMA [Concomitant]
     Dosage: 3 U, UNK
     Route: 042
     Dates: start: 20060112
  6. SODIUM BICARBONATE [Concomitant]
     Dosage: 50 MILLIEQUIVALENTS
     Route: 042
     Dates: start: 20060112
  7. VERSED [Concomitant]
     Dosage: 2 MG
     Route: 042
     Dates: start: 20060112
  8. FENTANYL [Concomitant]
     Dosage: 100 MICROGRAM
     Route: 042
     Dates: start: 20060112
  9. MAGNESIUM SULFATE [Concomitant]
     Dosage: 1.0 G, UNK
     Route: 042
     Dates: start: 20060112
  10. PLATELETS [Concomitant]
     Dosage: 3 U, UNK
     Route: 042
     Dates: start: 20060112
  11. CALCIUM CHLORIDE [Concomitant]
     Dosage: 500 MG
     Route: 042
     Dates: start: 20060112
  12. LABETALOL [Concomitant]
     Dosage: 15 MG
     Route: 042
     Dates: start: 20060112
  13. TRASYLOL [Suspect]
     Route: 042
     Dates: start: 20060113
  14. HEPARIN [Concomitant]
     Dosage: UNK
     Route: 042
     Dates: start: 20060112
  15. DIPRIVAN [Concomitant]
     Dosage: UNK
     Route: 042
     Dates: start: 20060112
  16. LASIX [Concomitant]
     Dosage: 40 MG, BID
     Route: 048

REACTIONS (12)
  - RENAL FAILURE [None]
  - ANXIETY [None]
  - UNEVALUABLE EVENT [None]
  - PAIN [None]
  - INJURY [None]
  - RENAL IMPAIRMENT [None]
  - STRESS [None]
  - EMOTIONAL DISTRESS [None]
  - FEAR [None]
  - ANHEDONIA [None]
  - RENAL INJURY [None]
  - PULMONARY HYPERTENSION [None]
